FAERS Safety Report 8816819 (Version 1)
Quarter: 2012Q4

REPORT INFORMATION
  Report Type: Spontaneous
  Country: IT (occurrence: None)
  Receive Date: 20121001
  Receipt Date: 20121001
  Transmission Date: 20130627
  Serious: Yes (Death)
  Sender: FDA-Public Use
  Company Number: 1423055

PATIENT
  Age: 77 Year
  Sex: Female
  Weight: 70 kg

DRUGS (6)
  1. OXALIPLATIN [Suspect]
     Indication: COLON CANCER
     Route: 042
     Dates: start: 20120821, end: 20120821
  2. OXALIPLATIN [Suspect]
     Indication: RECTAL CANCER
     Route: 042
     Dates: start: 20120821, end: 20120821
  3. FLUOROURACIL [Suspect]
     Indication: COLON CANCER
     Route: 042
     Dates: start: 20120821, end: 20120823
  4. FLUOROURACIL [Suspect]
     Indication: RECTAL CANCER
     Route: 042
     Dates: start: 20120821, end: 20120823
  5. AVASTIN [Concomitant]
  6. CALCIUM LEVOFOLINATE [Concomitant]

REACTIONS (13)
  - Diarrhoea [None]
  - Decreased appetite [None]
  - Stomatitis [None]
  - Respiratory distress [None]
  - Leukopenia [None]
  - Sepsis [None]
  - Hypokalaemia [None]
  - Hypercreatinaemia [None]
  - Thrombocytopenia [None]
  - Infusion related reaction [None]
  - Renal impairment [None]
  - Pseudomonas test positive [None]
  - Haematotoxicity [None]
